FAERS Safety Report 7528687-5 (Version None)
Quarter: 2011Q2

REPORT INFORMATION
  Report Type: 
  Country: None (occurrence: None)
  Receive Date: 20110607
  Receipt Date: 20110602
  Transmission Date: 20111010
  Serious: No
  Sender: FDA-Public Use
  Company Number: US-TEVA-284738USA

PATIENT
  Sex: Female
  Weight: 55.842 kg

DRUGS (2)
  1. ORAL CONTRACEPTIVE [Concomitant]
     Indication: CONTRACEPTION
     Route: 048
     Dates: start: 20110528
  2. PLAN B ONE-STEP [Suspect]
     Indication: POST COITAL CONTRACEPTION
     Dosage: 1.5 MILLIGRAM;
     Route: 048
     Dates: start: 20110528, end: 20110528

REACTIONS (4)
  - BREAST DISCHARGE [None]
  - BREAST TENDERNESS [None]
  - VOMITING [None]
  - NAUSEA [None]
